FAERS Safety Report 6297408-9 (Version None)
Quarter: 2009Q3

REPORT INFORMATION
  Report Type: 
  Country: None (occurrence: None)
  Receive Date: 20090805
  Receipt Date: 20090728
  Transmission Date: 20100115
  Serious: Yes (Other)
  Sender: FDA-Public Use
  Company Number: AU-JNJFOC-20090609195

PATIENT
  Sex: Male
  Weight: 1.81 kg

DRUGS (3)
  1. RISPERIDONE [Suspect]
  2. RISPERIDONE [Suspect]
     Indication: DRUG EXPOSURE DURING PREGNANCY
  3. MOCLOBEMIDE [Concomitant]

REACTIONS (4)
  - FEEDING DISORDER [None]
  - FOETAL GROWTH RETARDATION [None]
  - PREMATURE BABY [None]
  - SMALL FOR DATES BABY [None]
